FAERS Safety Report 11103396 (Version 1)
Quarter: 2015Q2

REPORT INFORMATION
  Report Type: Spontaneous
  Country: TW (occurrence: TW)
  Receive Date: 20150511
  Receipt Date: 20150511
  Transmission Date: 20150821
  Serious: Yes (Other)
  Sender: FDA-Public Use
  Company Number: TW-WATSON-2015-09055

PATIENT
  Sex: Female

DRUGS (1)
  1. MEPERIDINE HCL [Suspect]
     Active Substance: MEPERIDINE HYDROCHLORIDE
     Indication: PRODUCT USED FOR UNKNOWN INDICATION
     Dosage: UNK
     Route: 042

REACTIONS (4)
  - Eye movement disorder [Recovered/Resolved]
  - Nervous system disorder [Recovered/Resolved]
  - Ocular dysmetria [Recovered/Resolved]
  - Saccadic eye movement [Recovered/Resolved]
